FAERS Safety Report 15420340 (Version 1)
Quarter: 2018Q3

REPORT INFORMATION
  Report Type: Spontaneous
  Country: US (occurrence: US)
  Receive Date: 20180924
  Receipt Date: 20180924
  Transmission Date: 20181010
  Serious: No
  Sender: FDA-Public Use
  Company Number: US-SA-2018SA264533

PATIENT
  Age: 64 Year
  Sex: Male

DRUGS (2)
  1. DUPIXENT [Suspect]
     Active Substance: DUPILUMAB
     Indication: DERMATITIS ATOPIC
     Dosage: 2 DF, 1X
     Dates: start: 2017, end: 2017
  2. DUPIXENT [Suspect]
     Active Substance: DUPILUMAB
     Dosage: 1 DF, QOW
     Dates: start: 2017, end: 20180611

REACTIONS (5)
  - Urticaria [Unknown]
  - Skin exfoliation [Unknown]
  - Skin lesion [Unknown]
  - Gingivitis [Unknown]
  - Swelling [Unknown]
